FAERS Safety Report 22331598 (Version 1)
Quarter: 2023Q2

REPORT INFORMATION
  Report Type: Spontaneous
  Country: US (occurrence: None)
  Receive Date: 20230516
  Receipt Date: 20230516
  Transmission Date: 20230721
  Serious: Yes (Life-Threatening, Hospitalization, Disabling)
  Sender: FDA-Public Use
  Company Number: None

PATIENT
  Age: 60 Year
  Sex: Female
  Weight: 60.75 kg

DRUGS (1)
  1. RITODRINE [Suspect]
     Active Substance: RITODRINE
     Indication: Premature labour
     Dates: start: 19880704, end: 19880901

REACTIONS (3)
  - Disability [None]
  - Bipolar disorder [None]
  - Injury [None]

NARRATIVE: CASE EVENT DATE: 19880704
